FAERS Safety Report 6522747-3 (Version None)
Quarter: 2009Q4

REPORT INFORMATION
  Report Type: 
  Country: None (occurrence: None)
  Receive Date: 20091230
  Receipt Date: 20091221
  Transmission Date: 20100525
  Serious: Yes (Hospitalization)
  Sender: FDA-Public Use
  Company Number: NO-ABBOTT-09P-122-0615764-00

PATIENT
  Age: 39 Year
  Sex: Female

DRUGS (8)
  1. HUMIRA [Suspect]
     Indication: COLITIS ULCERATIVE
     Route: 058
     Dates: start: 20090828, end: 20090828
  2. PENTASA [Concomitant]
     Indication: COLITIS ULCERATIVE
     Route: 048
  3. IMUREL [Concomitant]
     Indication: COLITIS ULCERATIVE
     Route: 048
     Dates: start: 20090816
  4. CIPROXIN [Concomitant]
     Indication: DRUG USE FOR UNKNOWN INDICATION
     Dates: start: 20090830
  5. ASACOL [Concomitant]
     Indication: COLITIS ULCERATIVE
  6. ENTOCORT EC [Concomitant]
     Indication: COLITIS ULCERATIVE
     Route: 054
  7. TAZOCIN [Concomitant]
     Indication: DRUG USE FOR UNKNOWN INDICATION
     Dates: start: 20090901
  8. FLAGYL [Concomitant]
     Indication: DRUG USE FOR UNKNOWN INDICATION
     Dates: start: 20090830

REACTIONS (10)
  - COLITIS ULCERATIVE [None]
  - COUGH [None]
  - DYSPHONIA [None]
  - ERYTHEMA [None]
  - FACIAL PAIN [None]
  - HYPOPHAGIA [None]
  - NASAL OEDEMA [None]
  - OROPHARYNGEAL PAIN [None]
  - POLYCHONDRITIS [None]
  - SPUTUM INCREASED [None]
